FAERS Safety Report 22856345 (Version 2)
Quarter: 2024Q2

REPORT INFORMATION
  Report Type: Report from Study
  Country: US (occurrence: US)
  Receive Date: 20230823
  Receipt Date: 20240503
  Transmission Date: 20240716
  Serious: Yes (Hospitalization, Other)
  Sender: FDA-Public Use
  Company Number: US-ABBVIE-5378169

PATIENT
  Age: 57 Year
  Sex: Female

DRUGS (1)
  1. SKYRIZI [Suspect]
     Active Substance: RISANKIZUMAB-RZAA
     Indication: Psoriasis
     Route: 058
     Dates: start: 20230503, end: 202311

REACTIONS (4)
  - Spinal fusion surgery [Recovering/Resolving]
  - Sepsis [Unknown]
  - Staphylococcal infection [Unknown]
  - Procedural complication [Unknown]

NARRATIVE: CASE EVENT DATE: 20230816
